FAERS Safety Report 25637176 (Version 3)
Quarter: 2025Q3

REPORT INFORMATION
  Report Type: Spontaneous
  Country: EU (occurrence: EU)
  Receive Date: 20250804
  Receipt Date: 20250930
  Transmission Date: 20251021
  Serious: Yes (Hospitalization, Other)
  Sender: BOEHRINGER INGELHEIM
  Company Number: EU-Komodo Health-a23aa0000099htNAAQ

PATIENT
  Age: 77 Year
  Sex: Male

DRUGS (1)
  1. SPIRIVA RESPIMAT [Suspect]
     Active Substance: TIOTROPIUM BROMIDE
     Indication: Product used for unknown indication
     Dosage: 2 PUFFS IN THE MORNING

REACTIONS (6)
  - Cardiac failure [Unknown]
  - Cognitive disorder [Unknown]
  - Gait disturbance [Unknown]
  - Hypoacusis [Unknown]
  - Device difficult to use [Unknown]
  - Cardiac valve disease [Unknown]
